FAERS Safety Report 5580846-7 (Version None)
Quarter: 2008Q1

REPORT INFORMATION
  Report Type: 
  Country: None (occurrence: None)
  Receive Date: 20080103
  Receipt Date: 20080102
  Transmission Date: 20080703
  Serious: Yes (Other)
  Sender: FDA-Public Use
  Company Number: SI-BOEHRINGER INGELHEIM PHARMACEUTICALS, INC.-2008-DE-00006GD

PATIENT
  Age: 32 Year
  Sex: Female
  Weight: 101 kg

DRUGS (1)
  1. TELMISARTAN [Suspect]
     Indication: HYPERTENSION

REACTIONS (2)
  - ABORTION INDUCED [None]
  - WEIGHT DECREASED [None]
